FAERS Safety Report 20023356 (Version 1)
Quarter: 2021Q4

REPORT INFORMATION
  Report Type: Report from Study
  Country: CN (occurrence: CN)
  Receive Date: 20211102
  Receipt Date: 20211102
  Transmission Date: 20220303
  Serious: Yes (Other)
  Sender: FDA-Public Use
  Company Number: CN-SUN PHARMACEUTICAL INDUSTRIES LTD-2021R1-316189

PATIENT
  Sex: Male

DRUGS (2)
  1. CARBOPLATIN [Suspect]
     Active Substance: CARBOPLATIN
     Indication: Hormone-refractory prostate cancer
     Dosage: UNK
     Route: 042
  2. DOCETAXEL [Suspect]
     Active Substance: DOCETAXEL
     Indication: Hormone-refractory prostate cancer
     Dosage: UNK (75 MG/M2 )
     Route: 042

REACTIONS (1)
  - Disease progression [Unknown]
